FAERS Safety Report 8513735-6 (Version None)
Quarter: 2012Q3

REPORT INFORMATION
  Report Type: 
  Country: None (occurrence: None)
  Receive Date: 20120705
  Receipt Date: 20120621
  Transmission Date: 20120928
  Serious: Yes (Death, Hospitalization, Other)
  Sender: FDA-Public Use
  Company Number: 2011MA016018

PATIENT
  Age: 72 Year
  Sex: Female

DRUGS (9)
  1. MIRTAZAPINE [Suspect]
     Indication: SCHIZOAFFECTIVE DISORDER
     Dosage: 30 MG;QD;PO
     Route: 048
     Dates: start: 20110101, end: 20111023
  2. LITHIUM CITRATE [Suspect]
     Indication: SCHIZOAFFECTIVE DISORDER
     Dosage: 6 MMOL;UNK;PO
     Route: 048
     Dates: end: 20111023
  3. ESCITALOPRAM OXALATE [Suspect]
     Indication: SCHIZOAFFECTIVE DISORDER
     Dosage: 30 MG;QD;PO
     Route: 048
     Dates: end: 20111023
  4. ALPRAZOLAM [Concomitant]
  5. ZIPRASIDONE HYDROCHLORIDE [Suspect]
     Indication: SCHIZOAFFECTIVE DISORDER
     Dosage: 40 MG;BID;PO
     Route: 048
     Dates: end: 20111023
  6. FERRO CURETTER [Concomitant]
  7. KALIMKLORID [Concomitant]
  8. MIRTAZAPINE [Suspect]
     Indication: SCHIZOAFFECTIVE DISORDER
     Dosage: 30 MG;QD;PO
     Route: 048
     Dates: start: 20110101, end: 20111023
  9. CENTYL MED [Concomitant]

REACTIONS (20)
  - DYSPNOEA [None]
  - INFARCTION [None]
  - POLYDIPSIA [None]
  - LACTIC ACIDOSIS [None]
  - RHABDOMYOLYSIS [None]
  - POST PROCEDURAL COMPLICATION [None]
  - CARDIAC ENZYMES INCREASED [None]
  - NEUROLEPTIC MALIGNANT SYNDROME [None]
  - HYPERTENSION [None]
  - MULTI-ORGAN FAILURE [None]
  - DIALYSIS [None]
  - FALL [None]
  - HUMERUS FRACTURE [None]
  - CONSTIPATION [None]
  - LIVER DISORDER [None]
  - RENAL FAILURE ACUTE [None]
  - HEPATIC CIRRHOSIS [None]
  - URINARY TRACT INFECTION [None]
  - LACUNAR INFARCTION [None]
  - CARDIAC HYPERTROPHY [None]
